FAERS Safety Report 19985475 (Version 1)
Quarter: 2021Q4

REPORT INFORMATION
  Report Type: Spontaneous
  Country: US (occurrence: US)
  Receive Date: 20211022
  Receipt Date: 20211022
  Transmission Date: 20220304
  Serious: Yes (Hospitalization)
  Sender: FDA-Public Use
  Company Number: US-MLMSERVICE-20211005-3136996-1

PATIENT
  Age: 41 Year
  Sex: Female

DRUGS (5)
  1. HEPARIN SODIUM [Suspect]
     Active Substance: HEPARIN SODIUM
     Indication: Anticoagulant therapy
     Dosage: HEPARIN PURGE SOLUTION
  2. HEPARIN SODIUM [Suspect]
     Active Substance: HEPARIN SODIUM
     Dosage: HEPARIN PURGE SOLUTION
  3. ARGATROBAN [Suspect]
     Active Substance: ARGATROBAN
     Indication: Anticoagulant therapy
  4. DEXTROSE 5 PERCENT [Concomitant]
     Indication: Anticoagulant therapy
  5. DEXTROSE 5 PERCENT [Concomitant]

REACTIONS (1)
  - Medical device site haemorrhage [Recovered/Resolved]
